FAERS Safety Report 15812208 (Version 1)
Quarter: 2019Q1

REPORT INFORMATION
  Report Type: Spontaneous
  Country: US (occurrence: US)
  Receive Date: 20190110
  Receipt Date: 20190110
  Transmission Date: 20190417
  Serious: Yes (Life-Threatening, Hospitalization)
  Sender: FDA-Public Use
  Company Number: None

PATIENT
  Age: 34 Year
  Sex: Female

DRUGS (1)
  1. DECADRON [Suspect]
     Active Substance: DEXAMETHASONE

REACTIONS (8)
  - Abdominal pain upper [None]
  - Burning sensation [None]
  - Groin pain [None]
  - Aggression [None]
  - Lymph node pain [None]
  - Vaginal discharge [None]
  - Amenorrhoea [None]
  - Infertility [None]

NARRATIVE: CASE EVENT DATE: 20150620
